FAERS Safety Report 20188754 (Version 1)
Quarter: 2021Q4

REPORT INFORMATION
  Report Type: Spontaneous
  Country: US (occurrence: US)
  Receive Date: 20211215
  Receipt Date: 20211215
  Transmission Date: 20220303
  Serious: Yes (Hospitalization, Other)
  Sender: FDA-Public Use
  Company Number: US-Hikma Pharmaceuticals USA Inc.-US-H14001-21-05284

PATIENT
  Age: 23 Year
  Sex: Male
  Weight: 69.85 kg

DRUGS (2)
  1. KETAMINE [Suspect]
     Active Substance: KETAMINE
     Indication: Bipolar I disorder
     Dosage: SIX KETAMINE INFUSIONS
     Route: 041
  2. KETAMINE [Suspect]
     Active Substance: KETAMINE
     Indication: Post-traumatic stress disorder

REACTIONS (2)
  - Mania [Recovered/Resolved]
  - Psychotic behaviour [Recovered/Resolved]
